FAERS Safety Report 21081375 (Version 1)
Quarter: 2022Q3

REPORT INFORMATION
  Report Type: Spontaneous
  Country: US (occurrence: None)
  Receive Date: 20220713
  Receipt Date: 20220713
  Transmission Date: 20221026
  Serious: No
  Sender: FDA-Public Use
  Company Number: None

PATIENT
  Age: 72 Year
  Sex: Male
  Weight: 75.15 kg

DRUGS (10)
  1. MYSOLINE [Suspect]
     Active Substance: PRIMIDONE
     Indication: Essential tremor
     Dosage: FREQUENCY : TWICE A DAY;?
     Route: 048
     Dates: start: 20220614, end: 20220703
  2. DULERA [Concomitant]
     Active Substance: FORMOTEROL FUMARATE DIHYDRATE\MOMETASONE FUROATE
  3. Ventolin HFA (albuterol sulfate) [Concomitant]
  4. AZELASTINE HYDROCHLORIDE [Concomitant]
     Active Substance: AZELASTINE HYDROCHLORIDE
  5. Fluticasone Propionate (Aller-Flo) nasal Spray [Concomitant]
  6. PRILOSEC [Concomitant]
     Active Substance: OMEPRAZOLE MAGNESIUM
  7. ZOCOR [Concomitant]
     Active Substance: SIMVASTATIN
  8. Kirkland Adult 50+ Multivitamin [Concomitant]
  9. Ubinquinol (CoQ10) [Concomitant]
  10. FLAXSEED [Concomitant]
     Active Substance: FLAX SEED

REACTIONS (2)
  - Drug ineffective [None]
  - Product substitution issue [None]

NARRATIVE: CASE EVENT DATE: 20220615
